FAERS Safety Report 5207483-8 (Version None)
Quarter: 2006Q4

REPORT INFORMATION
  Report Type: 
  Country: None (occurrence: None)
  Receive Date: 20061027
  Receipt Date: 20060731
  Transmission Date: 20070319
  Serious: No
  Sender: FDA-Public Use
  Company Number: 2006CT000509

PATIENT
  Age: 64 Year
  Sex: Female
  Weight: 76.6579 kg

DRUGS (26)
  1. VENTAVIS [Suspect]
     Indication: PULMONARY HYPERTENSION
     Dosage: 5 UG;6XD;INH
     Route: 055
     Dates: start: 20060106
  2. VENTAVIS [Suspect]
     Indication: PULMONARY HYPERTENSION
     Dosage: 2.5 UG;6XD;INH
     Route: 055
  3. PREDNISONE [Concomitant]
  4. PREMPRO [Concomitant]
  5. SYNTHROID [Concomitant]
  6. PENTOXIFYLLINE [Concomitant]
  7. SILDENAFIL CITRATE [Concomitant]
  8. FOSAMAX [Concomitant]
  9. POTASSIUM CHLORIDE [Concomitant]
  10. FUROSEMIDE [Concomitant]
  11. ACTIMMUNE [Concomitant]
  12. ACETYLCYSTEINE [Concomitant]
  13. CALTRATE [Concomitant]
  14. IRON [Concomitant]
  15. PRILOSEC [Concomitant]
  16. BENZONATATE [Concomitant]
  17. ADVIL [Concomitant]
  18. CENTRUM SILVER [Concomitant]
  19. FOLIC ACID [Concomitant]
  20. ASCORBIC ACID [Concomitant]
  21. SELENIUM SULFIDE [Concomitant]
  22. BILBERRY [Concomitant]
  23. VACCINIUM MACROCARPON [Concomitant]
  24. GLUCOSAMINE HYDROCHLORIDE/CHRONDROITIN SULFATE [Concomitant]
  25. SENNA ALEXANDRINA [Concomitant]
  26. GARLIC [Concomitant]

REACTIONS (5)
  - COUGH [None]
  - FATIGUE [None]
  - MUSCLE SPASMS [None]
  - MYALGIA [None]
  - NAUSEA [None]
